FAERS Safety Report 7378596-X (Version None)
Quarter: 2011Q1

REPORT INFORMATION
  Report Type: 
  Country: None (occurrence: None)
  Receive Date: 20110328
  Receipt Date: 20110324
  Transmission Date: 20110831
  Serious: Yes (Other)
  Sender: FDA-Public Use
  Company Number: JP-BRACCO-004668

PATIENT
  Sex: Male

DRUGS (1)
  1. IOPAMIDOL [Suspect]
     Indication: COMPUTERISED TOMOGRAM
     Route: 042
     Dates: start: 20110309, end: 20110309

REACTIONS (4)
  - FALL [None]
  - HYPOVENTILATION [None]
  - BLOOD PRESSURE DECREASED [None]
  - PALLOR [None]
